FAERS Safety Report 9437486 (Version 1)
Quarter: 2013Q3

REPORT INFORMATION
  Report Type: Spontaneous
  Country: GB (occurrence: None)
  Receive Date: 20130731
  Receipt Date: 20130731
  Transmission Date: 20140515
  Serious: Yes (Other)
  Sender: FDA-Public Use
  Company Number: AUR-APL-2013-06218

PATIENT
  Age: 26 Year
  Sex: Female
  Weight: 64.4 kg

DRUGS (2)
  1. FLUOXETINE (FLUOXETINE) [Suspect]
     Indication: POSTPARTUM DEPRESSION
     Route: 048
     Dates: start: 20101001, end: 20120228
  2. LOGYNON (EUGYNON/00022701/) [Concomitant]

REACTIONS (5)
  - Dizziness [None]
  - Paraesthesia [None]
  - Tinnitus [None]
  - Visual impairment [None]
  - Presyncope [None]
